FAERS Safety Report 5362992-6 (Version None)
Quarter: 2007Q2

REPORT INFORMATION
  Report Type: 
  Country: None (occurrence: None)
  Receive Date: 20070615
  Receipt Date: 20070605
  Transmission Date: 20071010
  Serious: Yes (Hospitalization)
  Sender: FDA-Public Use
  Company Number: GXKR2007GB04865

PATIENT
  Age: 91 Year
  Sex: Male
  Weight: 70 kg

DRUGS (3)
  1. ASPIRIN [Suspect]
     Indication: MYOCARDIAL ISCHAEMIA
     Dosage: 75 MG, QD,  ORAL
     Route: 048
     Dates: end: 20070307
  2. FINASTERIDE [Concomitant]
  3. FUROSEMIDE [Concomitant]

REACTIONS (2)
  - HAEMORRHAGE [None]
  - MICROCYTIC ANAEMIA [None]
